FAERS Safety Report 22235631 (Version 6)
Quarter: 2024Q1

REPORT INFORMATION
  Report Type: Report from Study
  Country: CN (occurrence: CN)
  Receive Date: 20230420
  Receipt Date: 20240229
  Transmission Date: 20240410
  Serious: Yes (Hospitalization, Other)
  Sender: FDA-Public Use
  Company Number: CN-TAKEDA-2023TUS038651

PATIENT
  Age: 52 Year
  Sex: Male
  Weight: 67 kg

DRUGS (8)
  1. VEDOLIZUMAB [Suspect]
     Active Substance: VEDOLIZUMAB
     Indication: Colitis ulcerative
     Dosage: 300 MILLIGRAM
     Route: 042
     Dates: start: 20230117
  2. MESALAMINE [Concomitant]
     Active Substance: MESALAMINE
     Indication: Inflammatory bowel disease
     Dosage: 2 GRAM, BID
     Route: 048
     Dates: start: 20210204, end: 202302
  3. VONOPRAZAN FUMARATE [Concomitant]
     Active Substance: VONOPRAZAN FUMARATE
     Indication: Gastrointestinal disorder prophylaxis
     Dosage: 20 MILLIGRAM, QD
     Route: 048
     Dates: start: 20230529
  4. IRON SUCROSE [Concomitant]
     Active Substance: IRON SUCROSE
     Indication: Mineral supplementation
     Dosage: 0.2 GRAM, QD
     Route: 042
     Dates: start: 20230612, end: 20230612
  5. FERRIC POLYSACCHARIDE COMPLEX [Concomitant]
     Active Substance: FERRIC POLYSACCHARIDE COMPLEX
     Indication: Mineral supplementation
     Dosage: 0.15 GRAM, QD
     Route: 042
     Dates: start: 20230612
  6. Combined clostridium butyricum and bifidobacterium capsules, live [Concomitant]
     Indication: Inflammatory bowel disease
     Dosage: 2 GRAM, TID
     Route: 048
     Dates: start: 20230118
  7. Combined clostridium butyricum and bifidobacterium capsules, live [Concomitant]
     Dosage: 2 GRAM, TID
     Route: 048
     Dates: start: 20230412
  8. Bifid.triple viable [Concomitant]
     Indication: Inflammatory bowel disease
     Dosage: 420 MILLIGRAM, QD
     Route: 048
     Dates: start: 20230412

REACTIONS (5)
  - Haematochezia [Recovered/Resolved]
  - Hypoalbuminaemia [Recovered/Resolved]
  - Epstein-Barr virus infection [Recovered/Resolved]
  - Anaemia [Recovered/Resolved]
  - Anal fistula [Not Recovered/Not Resolved]

NARRATIVE: CASE EVENT DATE: 20230129
